FAERS Safety Report 19129843 (Version 1)
Quarter: 2021Q2

REPORT INFORMATION
  Report Type: Report from Study
  Country: US (occurrence: US)
  Receive Date: 20210413
  Receipt Date: 20210413
  Transmission Date: 20210717
  Serious: Yes (Death, Life-Threatening, Hospitalization, Disabling)
  Sender: FDA-Public Use
  Company Number: US-TG THERAPEUTICS INC.-UTX-VN207-202001692

PATIENT
  Age: 79 Year
  Sex: Male
  Weight: 106 kg

DRUGS (3)
  1. UBLITUXIMAB [Suspect]
     Active Substance: UBLITUXIMAB
     Indication: CHRONIC LYMPHOCYTIC LEUKAEMIA
     Dosage: 900 MG
     Route: 042
     Dates: start: 20200805, end: 20200905
  2. UMBRALISIB [Suspect]
     Active Substance: UMBRALISIB
     Indication: CHRONIC LYMPHOCYTIC LEUKAEMIA
     Dosage: 800 MG, QD
     Route: 048
     Dates: start: 20200805, end: 20200905
  3. VENETOCLAX. [Suspect]
     Active Substance: VENETOCLAX
     Indication: CHRONIC LYMPHOCYTIC LEUKAEMIA

REACTIONS (2)
  - Haemophagocytic lymphohistiocytosis [Fatal]
  - Sepsis [Fatal]

NARRATIVE: CASE EVENT DATE: 20200906
